FAERS Safety Report 5731408-X (Version None)
Quarter: 2008Q2

REPORT INFORMATION
  Report Type: 
  Country: None (occurrence: None)
  Receive Date: 20080508
  Receipt Date: 20080429
  Transmission Date: 20081010
  Serious: Yes (Other)
  Sender: FDA-Public Use
  Company Number: PHBS2008US03968

PATIENT
  Age: 16 Year
  Sex: Male

DRUGS (2)
  1. BACLOFEN [Suspect]
     Route: 048
  2. LIORESAL [Suspect]
     Indication: MUSCLE SPASTICITY
     Dosage: 360 UG/D
     Route: 037

REACTIONS (10)
  - CONSTIPATION [None]
  - DRUG WITHDRAWAL SYNDROME [None]
  - LETHARGY [None]
  - MUSCLE SPASMS [None]
  - MUSCLE SPASTICITY [None]
  - MUSCLE TIGHTNESS [None]
  - OVERDOSE [None]
  - PRURITUS [None]
  - SOMNOLENCE [None]
  - UNDERDOSE [None]
